FAERS Safety Report 4791142-X (Version None)
Quarter: 2005Q4

REPORT INFORMATION
  Report Type: 
  Country: None (occurrence: None)
  Receive Date: 20051005
  Receipt Date: 20050921
  Transmission Date: 20060501
  Serious: Yes (Hospitalization, Other)
  Sender: FDA-Public Use
  Company Number: HQWYE852125JAN05

PATIENT
  Age: 60 Year
  Sex: Male

DRUGS (7)
  1. CORDARONE [Suspect]
     Indication: NODAL ARRHYTHMIA
     Dosage: 200 MG 1X PER 1 DAY ORAL
     Route: 048
     Dates: start: 20041220, end: 20050110
  2. PYOSTACINE (PRISTINAMYCIN,) [Suspect]
     Indication: SKIN INFECTION
     Dosage: 1 G 3X PER 1 DAY ORAL
     Route: 048
     Dates: start: 20041123, end: 20050101
  3. TENORMIN [Suspect]
     Indication: NODAL ARRHYTHMIA
     Dosage: 200 MG 1X PER 1 DAY ORAL
     Route: 048
     Dates: start: 20041220, end: 20050110
  4. ENALAPRIL MALEATE [Concomitant]
  5. COZAAR [Concomitant]
  6. HYZAAR [Concomitant]
  7. INSULIN [Concomitant]

REACTIONS (4)
  - DERMATITIS EXFOLIATIVE [None]
  - EYELID OEDEMA [None]
  - HAEMOGLOBIN DECREASED [None]
  - RASH ERYTHEMATOUS [None]
